FAERS Safety Report 7748971-X (Version None)
Quarter: 2011Q3

REPORT INFORMATION
  Report Type: 
  Country: None (occurrence: None)
  Receive Date: 20110909
  Receipt Date: 20110922
  Transmission Date: 20111222
  Serious: Yes (Other)
  Sender: FDA-Public Use
  Company Number: B0744349A

PATIENT
  Sex: Female

DRUGS (2)
  1. COMBIVIR [Suspect]
     Indication: ANTIRETROVIRAL THERAPY
  2. LOPINAVIR AND RITONAVIR [Suspect]
     Indication: ANTIRETROVIRAL THERAPY

REACTIONS (13)
  - PREMATURE LABOUR [None]
  - BLOOD ALKALINE PHOSPHATASE INCREASED [None]
  - ATRIAL FIBRILLATION [None]
  - MATERNAL EXPOSURE DURING PREGNANCY [None]
  - GAMMA-GLUTAMYLTRANSFERASE INCREASED [None]
  - ALANINE AMINOTRANSFERASE INCREASED [None]
  - RASH PRURITIC [None]
  - LIVER DISORDER [None]
  - RASH MACULO-PAPULAR [None]
  - DRUG HYPERSENSITIVITY [None]
  - PREMATURE BABY [None]
  - ASPARTATE AMINOTRANSFERASE INCREASED [None]
  - EOSINOPHIL COUNT INCREASED [None]
